FAERS Safety Report 18790927 (Version 2)
Quarter: 2021Q1

REPORT INFORMATION
  Report Type: Report from Study
  Country: US (occurrence: US)
  Receive Date: 20210126
  Receipt Date: 20210217
  Transmission Date: 20210419
  Serious: Yes (Death, Hospitalization, Other)
  Sender: FDA-Public Use
  Company Number: US-EXELIXIS-CABO-21036595

PATIENT
  Sex: Male

DRUGS (33)
  1. FLONASE [Concomitant]
     Active Substance: FLUTICASONE PROPIONATE
  2. SOLU?CORTEF [Concomitant]
     Active Substance: HYDROCORTISONE SODIUM SUCCINATE
  3. MAG OXIDE [Concomitant]
     Active Substance: MAGNESIUM OXIDE
  4. CABOMETYX [Suspect]
     Active Substance: CABOZANTINIB S-MALATE
     Indication: METASTATIC RENAL CELL CARCINOMA
     Dosage: 60 MG, QD
     Route: 048
     Dates: start: 20200805, end: 20200820
  5. CABOMETYX [Suspect]
     Active Substance: CABOZANTINIB S-MALATE
     Dosage: 60 MG, QD
     Route: 048
     Dates: end: 20200917
  6. OMEPRAZOLE. [Concomitant]
     Active Substance: OMEPRAZOLE
  7. CHOLECALCIFEROL [Concomitant]
     Active Substance: CHOLECALCIFEROL
  8. ASPIRIN. [Concomitant]
     Active Substance: ASPIRIN
  9. CLONAZEPAM. [Concomitant]
     Active Substance: CLONAZEPAM
  10. FLORINEF ACETATE [Concomitant]
     Active Substance: FLUDROCORTISONE ACETATE
  11. PRILOSEC [Concomitant]
     Active Substance: OMEPRAZOLE MAGNESIUM
  12. PREDNISONE. [Concomitant]
     Active Substance: PREDNISONE
  13. PRINIVIL [Concomitant]
     Active Substance: LISINOPRIL
  14. SYNTHROID [Concomitant]
     Active Substance: LEVOTHYROXINE SODIUM
  15. ZOCOR [Concomitant]
     Active Substance: SIMVASTATIN
  16. CABOMETYX [Suspect]
     Active Substance: CABOZANTINIB S-MALATE
     Dosage: 60 MG, QD
     Route: 048
     Dates: start: 20201217, end: 20201231
  17. KLONOPIN [Concomitant]
     Active Substance: CLONAZEPAM
  18. NEURONTIN [Concomitant]
     Active Substance: GABAPENTIN
  19. TOPROL XL [Concomitant]
     Active Substance: METOPROLOL SUCCINATE
  20. ULTRAM [Concomitant]
     Active Substance: TRAMADOL HYDROCHLORIDE
  21. MAG64 [Concomitant]
     Active Substance: CALCIUM CHLORIDE\MAGNESIUM CHLORIDE
  22. CENTRUM [Concomitant]
     Active Substance: VITAMINS
  23. DELTASONE [Concomitant]
     Active Substance: PREDNISONE
  24. METOPROLOL SUCCINATE. [Concomitant]
     Active Substance: METOPROLOL SUCCINATE
  25. GABAPENTIN. [Concomitant]
     Active Substance: GABAPENTIN
  26. FLUDROCORTISONE [Concomitant]
     Active Substance: FLUDROCORTISONE
  27. PLAVIX [Concomitant]
     Active Substance: CLOPIDOGREL BISULFATE
  28. OPDIVO [Concomitant]
     Active Substance: NIVOLUMAB
  29. NORCO [Concomitant]
     Active Substance: ACETAMINOPHEN\HYDROCODONE BITARTRATE
  30. TYLENOL WITH CODEINE [Concomitant]
     Active Substance: ACETAMINOPHEN\CODEINE PHOSPHATE
  31. POTASSIUM CHLORIDE. [Concomitant]
     Active Substance: POTASSIUM CHLORIDE
  32. TRAMADOL. [Concomitant]
     Active Substance: TRAMADOL
  33. LEVOTHYROXINE. [Concomitant]
     Active Substance: LEVOTHYROXINE

REACTIONS (4)
  - Malignant neoplasm progression [Fatal]
  - Pneumonia bacterial [Fatal]
  - Fatigue [Unknown]
  - Encephalopathy [Unknown]
